FAERS Safety Report 20289469 (Version 1)
Quarter: 2022Q1

REPORT INFORMATION
  Report Type: Spontaneous
  Country: AU (occurrence: AU)
  Receive Date: 20220104
  Receipt Date: 20220104
  Transmission Date: 20220424
  Serious: Yes (Other)
  Sender: FDA-Public Use
  Company Number: AU-JNJFOC-20211256880

PATIENT
  Age: 64 Year
  Sex: Female

DRUGS (2)
  1. OPSUMIT [Suspect]
     Active Substance: MACITENTAN
     Indication: Product used for unknown indication
     Route: 048
  2. TADALAFIL [Suspect]
     Active Substance: TADALAFIL
     Indication: Product used for unknown indication
     Route: 065

REACTIONS (2)
  - Near death experience [Recovering/Resolving]
  - Product dose omission issue [Unknown]

NARRATIVE: CASE EVENT DATE: 20211201
